FAERS Safety Report 5700340-X (Version None)
Quarter: 2008Q2

REPORT INFORMATION
  Report Type: 
  Country: None (occurrence: None)
  Receive Date: 20080410
  Receipt Date: 20080331
  Transmission Date: 20081010
  Serious: Yes (Other)
  Sender: FDA-Public Use
  Company Number: US-PFIZER INC-2008006672

PATIENT
  Sex: Female
  Weight: 79.545 kg

DRUGS (2)
  1. CHANTIX [Suspect]
     Indication: SMOKING CESSATION THERAPY
     Route: 048
     Dates: start: 20080114, end: 20080117
  2. LOMOTIL [Interacting]
     Indication: DYSPEPSIA
     Route: 048

REACTIONS (4)
  - DRUG INTERACTION [None]
  - FLATULENCE [None]
  - INTESTINAL OBSTRUCTION [None]
  - PANCREATIC CARCINOMA [None]
